FAERS Safety Report 4918976-2 (Version None)
Quarter: 2006Q1

REPORT INFORMATION
  Report Type: 
  Country: None (occurrence: None)
  Receive Date: 20060222
  Receipt Date: 20051017
  Transmission Date: 20060701
  Serious: Yes (Hospitalization)
  Sender: FDA-Public Use
  Company Number: US-MERCK-0510USA07664

PATIENT
  Age: 58 Year
  Sex: Female
  Weight: 115 kg

DRUGS (10)
  1. VIOXX [Suspect]
     Route: 048
     Dates: start: 20010326, end: 20030701
  2. ATENOLOL [Concomitant]
     Route: 048
  3. PREMARIN [Concomitant]
     Route: 065
  4. PROZAC [Concomitant]
     Route: 065
  5. ASCORBIC ACID [Concomitant]
     Route: 065
  6. VITAMIN D (UNSPECIFIED) [Concomitant]
     Route: 065
  7. GLUCOPHAGE XR [Concomitant]
     Route: 065
  8. POTASSIUM CHLORIDE [Concomitant]
     Route: 065
  9. LASIX [Concomitant]
     Route: 065
  10. LUVOX [Concomitant]
     Route: 065

REACTIONS (16)
  - ACUTE SINUSITIS [None]
  - ASTHENIA [None]
  - BACK PAIN [None]
  - BLOOD GLUCOSE INCREASED [None]
  - CEREBROVASCULAR ACCIDENT [None]
  - DIZZINESS [None]
  - FATIGUE [None]
  - HEADACHE [None]
  - HYPERTENSION [None]
  - HYPOAESTHESIA [None]
  - INSOMNIA [None]
  - LITHOTRIPSY [None]
  - SINUSITIS [None]
  - SUBARACHNOID HAEMORRHAGE [None]
  - URINARY TRACT INFECTION [None]
  - VISION BLURRED [None]
